FAERS Safety Report 23593605 (Version 2)
Quarter: 2024Q1

REPORT INFORMATION
  Report Type: Spontaneous
  Country: FR (occurrence: FR)
  Receive Date: 20240304
  Receipt Date: 20240315
  Transmission Date: 20240410
  Serious: Yes (Life-Threatening)
  Sender: FDA-Public Use
  Company Number: None

PATIENT
  Age: 46 Year
  Sex: Female

DRUGS (4)
  1. DIAZEPAM [Suspect]
     Active Substance: DIAZEPAM
     Indication: Poisoning deliberate
     Dosage: TIME INTERVAL: TOTAL
     Route: 048
     Dates: start: 20231218, end: 20231218
  2. DAFALGAN CODEINE [Suspect]
     Active Substance: ACETAMINOPHEN\CODEINE PHOSPHATE
     Indication: Poisoning deliberate
     Dosage: TIME INTERVAL: TOTAL
     Route: 048
     Dates: start: 20231218, end: 20231218
  3. TIAPRIDE HYDROCHLORIDE [Suspect]
     Active Substance: TIAPRIDE HYDROCHLORIDE
     Indication: Poisoning deliberate
     Dosage: TIME INTERVAL: TOTAL: SCORED TABLET
     Route: 048
     Dates: start: 20231218, end: 20231218
  4. MORPHINE SULFATE [Suspect]
     Active Substance: MORPHINE SULFATE
     Indication: Poisoning deliberate
     Dosage: TIME INTERVAL: TOTAL
     Route: 048
     Dates: start: 20231218, end: 20231218

REACTIONS (6)
  - Altered state of consciousness [Recovered/Resolved]
  - Miosis [Recovered/Resolved]
  - Blood creatine phosphokinase increased [Recovering/Resolving]
  - Bradypnoea [Recovered/Resolved]
  - Pyrexia [Recovered/Resolved]
  - Urinary retention [Recovered/Resolved]

NARRATIVE: CASE EVENT DATE: 20231218
